FAERS Safety Report 17685304 (Version 1)
Quarter: 2020Q2

REPORT INFORMATION
  Report Type: Spontaneous
  Country: US (occurrence: US)
  Receive Date: 20200420
  Receipt Date: 20200420
  Transmission Date: 20200714
  Serious: Yes (Other)
  Sender: FDA-Public Use
  Company Number: US-INDIVIOR US-INDV-124470-2020

PATIENT
  Age: 36 Year
  Sex: Male

DRUGS (3)
  1. BUPRENORPHINE. [Suspect]
     Active Substance: BUPRENORPHINE
     Indication: DRUG USE DISORDER
     Dosage: UNK
     Route: 065
  2. BUPRENORPHINE. [Suspect]
     Active Substance: BUPRENORPHINE
     Dosage: 8 MG, Q12H
     Route: 065
  3. BUPRENORPHINE. [Suspect]
     Active Substance: BUPRENORPHINE
     Dosage: 150 MCG, Q6H (TITRATED TO UPWARD IDENTICAL TO PREVIOUS DOSING)
     Route: 065

REACTIONS (8)
  - Road traffic accident [Recovered/Resolved]
  - Drug withdrawal syndrome [Unknown]
  - Femur fracture [Unknown]
  - Rib fracture [Unknown]
  - Wrong technique in product usage process [Unknown]
  - Splenic rupture [Unknown]
  - Off label use [Unknown]
  - Pain [Unknown]
